FAERS Safety Report 12847665 (Version 2)
Quarter: 2019Q3

REPORT INFORMATION
  Report Type: Spontaneous
  Country: FR (occurrence: FR)
  Receive Date: 20161014
  Receipt Date: 20190902
  Transmission Date: 20191004
  Serious: Yes (Hospitalization)
  Sender: FDA-Public Use
  Company Number: FR-AMGEN-FRASP2016140700

PATIENT
  Age: 38 Year
  Sex: Female
  Weight: 75.5 kg

DRUGS (13)
  1. LAROXYL [Concomitant]
     Active Substance: AMITRIPTYLINE HYDROCHLORIDE
     Dosage: UNK
  2. DOLIPRANE [Concomitant]
     Active Substance: ACETAMINOPHEN
     Dosage: UNK
  3. DERMOVAL [CLOBETASOL PROPIONATE] [Concomitant]
     Dosage: UNK
  4. COLCHICINE. [Concomitant]
     Active Substance: COLCHICINE
     Dosage: UNK
  5. OMEPRAZOLE. [Concomitant]
     Active Substance: OMEPRAZOLE
     Dosage: UNK
  6. DEXERYL [Concomitant]
     Dosage: UNK
  7. HUMIRA [Suspect]
     Active Substance: ADALIMUMAB
     Indication: SAPHO SYNDROME
     Dosage: 40 MILLIGRAM (EVERY 2 WEEKS)
     Route: 058
     Dates: start: 201601, end: 201603
  8. ENBREL [Suspect]
     Active Substance: ETANERCEPT
     Indication: SAPHO SYNDROME
     Dosage: 50 MILLIGRAM, QWK
     Route: 058
     Dates: start: 201509, end: 201512
  9. INFLECTRA [Suspect]
     Active Substance: INFLIXIMAB-DYYB
     Indication: SAPHO SYNDROME
     Dosage: 5 MILLIGRAM/KILOGRAM (SINGLE)
     Route: 042
     Dates: start: 20160321
  10. FUNGIZONE [Concomitant]
     Active Substance: AMPHOTERICIN B
     Dosage: UNK
  11. PROFENID [Concomitant]
     Active Substance: KETOPROFEN
     Dosage: UNK
  12. SOLUPRED [PREDNISOLONE] [Concomitant]
     Active Substance: PREDNISOLONE
     Dosage: UNK
  13. DIPROSONE [BETAMETHASONE SODIUM PHOSPHATE] [Concomitant]
     Dosage: UNK

REACTIONS (2)
  - Product use in unapproved indication [Unknown]
  - Pustular psoriasis [Not Recovered/Not Resolved]

NARRATIVE: CASE EVENT DATE: 201509
